FAERS Safety Report 19083979 (Version 8)
Quarter: 2021Q4

REPORT INFORMATION
  Report Type: Spontaneous
  Country: JP (occurrence: JP)
  Receive Date: 20210401
  Receipt Date: 20211203
  Transmission Date: 20220303
  Serious: Yes (Hospitalization)
  Sender: FDA-Public Use
  Company Number: JP-UNITED THERAPEUTICS-UNT-2020-004403

PATIENT
  Age: 1 Year
  Sex: Male
  Weight: 10.5 kg

DRUGS (61)
  1. REMODULIN [Suspect]
     Active Substance: TREPROSTINIL
     Indication: Pulmonary arterial hypertension
     Dosage: UNK, CONTINUING
     Route: 041
     Dates: start: 20190214, end: 201902
  2. REMODULIN [Suspect]
     Active Substance: TREPROSTINIL
     Dosage: 0.052 ?G/KG, CONTINUING
     Route: 041
     Dates: start: 201902
  3. REMODULIN [Suspect]
     Active Substance: TREPROSTINIL
     Dosage: 0.092 ?G/KG, CONTINUING
     Route: 041
     Dates: start: 20190221
  4. REMODULIN [Suspect]
     Active Substance: TREPROSTINIL
     Dosage: 0.124 ?G/KG, CONTINUING
     Route: 041
     Dates: start: 2019
  5. REMODULIN [Suspect]
     Active Substance: TREPROSTINIL
     Dosage: 0.131 ?G/KG, CONTINUING
     Route: 041
     Dates: start: 2019
  6. REMODULIN [Suspect]
     Active Substance: TREPROSTINIL
     Dosage: 0.114 ?G/KG, CONTINUING
     Route: 041
     Dates: start: 2019
  7. REMODULIN [Suspect]
     Active Substance: TREPROSTINIL
     Dosage: APPROXIMATELY 0.120-0.130 ?G/KG, CONTINUING
     Route: 041
     Dates: end: 20200310
  8. REMODULIN [Suspect]
     Active Substance: TREPROSTINIL
     Indication: Pulmonary arterial hypertension
     Dosage: UNK, CONTINUING
     Route: 058
     Dates: start: 20200310
  9. REMODULIN [Suspect]
     Active Substance: TREPROSTINIL
     Dosage: 0.115 ?G/KG, CONTINUING
     Route: 058
     Dates: start: 202003
  10. REMODULIN [Suspect]
     Active Substance: TREPROSTINIL
     Dosage: UNK, (50 MG, 26 MICROL/H), CONTINUING
     Route: 058
     Dates: start: 202003
  11. REMODULIN [Suspect]
     Active Substance: TREPROSTINIL
     Dosage: UNK, (50 MG, 32 MICROL/H), CONTINUING
     Route: 058
     Dates: start: 202003
  12. REMODULIN [Suspect]
     Active Substance: TREPROSTINIL
     Dosage: UNK (REDUCTION OF DOSING RATE)
     Route: 058
     Dates: start: 20210209
  13. ADCIRCA [Concomitant]
     Active Substance: TADALAFIL
     Indication: Pulmonary arterial hypertension
     Dosage: 20 MG, QD
     Route: 048
     Dates: start: 201810
  14. OPSUMIT [Concomitant]
     Active Substance: MACITENTAN
     Indication: Pulmonary arterial hypertension
     Dosage: 2 MG, QD
     Route: 048
     Dates: start: 201809
  15. DIPYRIDAMOLE [Concomitant]
     Active Substance: DIPYRIDAMOLE
     Indication: Product used for unknown indication
     Dosage: 60 MG, QD
     Route: 042
  16. SOLDEM 3AG [Concomitant]
     Indication: Fluid replacement
     Dosage: UNK
     Route: 065
     Dates: end: 20190216
  17. CALCIUM CHLORIDE\POTASSIUM CHLORIDE\SODIUM ACETATE\SODIUM CHLORIDE [Concomitant]
     Active Substance: CALCIUM CHLORIDE\POTASSIUM CHLORIDE\SODIUM ACETATE\SODIUM CHLORIDE
     Indication: Infusion
     Dosage: UNK
     Route: 065
     Dates: end: 20190224
  18. SODIUM PHOSPHATE, DIBASIC\SODIUM PHOSPHATE, MONOBASIC [Concomitant]
     Active Substance: SODIUM PHOSPHATE, DIBASIC\SODIUM PHOSPHATE, MONOBASIC
     Indication: Product used for unknown indication
     Dosage: UNK
     Route: 048
  19. TRICHLORMETHIAZIDE [Concomitant]
     Active Substance: TRICHLORMETHIAZIDE
     Indication: Product used for unknown indication
     Dosage: UNK
     Route: 048
     Dates: end: 20190405
  20. SAMSCA [Concomitant]
     Active Substance: TOLVAPTAN
     Indication: Product used for unknown indication
     Dosage: UNK
     Route: 048
     Dates: end: 20190404
  21. POTASSIUM CHLORIDE [Concomitant]
     Active Substance: POTASSIUM CHLORIDE
     Indication: Product used for unknown indication
     Dosage: UNK
     Route: 048
  22. FUROSEMIDE [Concomitant]
     Active Substance: FUROSEMIDE
     Indication: Product used for unknown indication
     Dosage: UNK
     Route: 048
     Dates: end: 20190221
  23. FUROSEMIDE [Concomitant]
     Active Substance: FUROSEMIDE
     Dosage: UNK
     Route: 048
     Dates: start: 20190511, end: 20190513
  24. SPIRONOLACTONE [Concomitant]
     Active Substance: SPIRONOLACTONE
     Indication: Product used for unknown indication
     Dosage: UNK
     Route: 048
     Dates: end: 20190720
  25. CORTRIL [Concomitant]
     Active Substance: HYDROCORTISONE
     Indication: Product used for unknown indication
     Dosage: UNK
     Route: 048
     Dates: end: 20190324
  26. Incremin [Concomitant]
     Indication: Product used for unknown indication
     Dosage: UNK
     Route: 048
  27. FAMOTIDINE [Concomitant]
     Active Substance: FAMOTIDINE
     Indication: Steroid therapy
     Dosage: UNK
     Route: 048
     Dates: end: 20190808
  28. HYDROXYZINE HYDROCHLORIDE [Concomitant]
     Active Substance: HYDROXYZINE HYDROCHLORIDE
     Indication: Dyssomnia
     Dosage: UNK
     Route: 048
     Dates: end: 20190822
  29. LEVOCARNITINE HYDROCHLORIDE [Concomitant]
     Active Substance: LEVOCARNITINE HYDROCHLORIDE
     Indication: Product used for unknown indication
     Dosage: UNK
     Route: 048
     Dates: end: 20190822
  30. BIO-THREE [Concomitant]
     Active Substance: HERBALS
     Indication: Prophylaxis
     Dosage: UNK
     Route: 048
  31. MOSAPRIDE CITRATE [Concomitant]
     Active Substance: MOSAPRIDE CITRATE
     Indication: Product used for unknown indication
     Dosage: UNK
     Route: 048
     Dates: end: 20190327
  32. HERBAL NOS [Concomitant]
     Active Substance: HERBALS
     Indication: Product used for unknown indication
     Dosage: UNK
     Route: 048
     Dates: end: 20190327
  33. CARBOCYSTEINE [Concomitant]
     Active Substance: CARBOCYSTEINE
     Indication: Product used for unknown indication
     Dosage: UNK
     Route: 048
  34. VITAMINS [Concomitant]
     Active Substance: VITAMINS
     Indication: Vitamin supplementation
     Dosage: UNK
     Route: 048
  35. DIPYRIDAMOLE [Concomitant]
     Active Substance: DIPYRIDAMOLE
     Indication: Product used for unknown indication
     Dosage: UNK
     Route: 048
  36. PREDNISOLONE [Concomitant]
     Active Substance: PREDNISOLONE
     Indication: Product used for unknown indication
     Dosage: UNK
     Route: 048
     Dates: start: 20190324, end: 20190808
  37. BIMMUGEN [Concomitant]
     Indication: Antiviral prophylaxis
     Dosage: UNK
     Route: 065
     Dates: start: 20190411, end: 20190411
  38. BIMMUGEN [Concomitant]
     Dosage: UNK
     Route: 065
     Dates: start: 20190509, end: 20190509
  39. BIMMUGEN [Concomitant]
     Dosage: UNK
     Route: 065
     Dates: start: 20190905, end: 20190905
  40. MEARUBIK [Concomitant]
     Indication: Prophylaxis
     Dosage: UNK
     Route: 065
     Dates: start: 20190411, end: 20190411
  41. VARICELLA VACCINE LIVE ATTENUATED [Concomitant]
     Indication: Prophylaxis
     Dosage: UNK
     Route: 065
     Dates: start: 20190411, end: 20190411
  42. VARICELLA VACCINE LIVE ATTENUATED [Concomitant]
     Dosage: UNK
     Route: 065
     Dates: start: 20190718, end: 20190718
  43. ACTHIB [Concomitant]
     Active Substance: HAEMOPHILUS B CONJUGATE VACCINE (TETANUS TOXOID CONJUGATE)\HAEMOPHILUS INFLUENZAE TYPE B STRAIN 1482
     Indication: Prophylaxis
     Dosage: UNK
     Route: 065
     Dates: start: 20190411, end: 20190411
  44. ACTHIB [Concomitant]
     Active Substance: HAEMOPHILUS B CONJUGATE VACCINE (TETANUS TOXOID CONJUGATE)\HAEMOPHILUS INFLUENZAE TYPE B STRAIN 1482
     Dosage: UNK
     Route: 065
     Dates: start: 20190509, end: 20190509
  45. ACTHIB [Concomitant]
     Active Substance: HAEMOPHILUS B CONJUGATE VACCINE (TETANUS TOXOID CONJUGATE)\HAEMOPHILUS INFLUENZAE TYPE B STRAIN 1482
     Dosage: UNK
     Route: 065
     Dates: start: 20190704, end: 20190704
  46. PREVNAR 13 [Concomitant]
     Active Substance: PNEUMOCOCCAL 13-VALENT CONJUGATE VACCINE
     Indication: Prophylaxis
     Dosage: UNK
     Route: 065
     Dates: start: 20190411, end: 20190411
  47. PREVNAR 13 [Concomitant]
     Active Substance: PNEUMOCOCCAL 13-VALENT CONJUGATE VACCINE
     Dosage: UNK
     Route: 065
     Dates: start: 20190509, end: 20190509
  48. PREVNAR 13 [Concomitant]
     Active Substance: PNEUMOCOCCAL 13-VALENT CONJUGATE VACCINE
     Dosage: UNK
     Route: 065
     Dates: start: 20190704, end: 20190704
  49. SQUAREKIDS [Concomitant]
     Indication: Prophylaxis
     Dosage: UNK
     Route: 065
     Dates: start: 20190411, end: 20190411
  50. SQUAREKIDS [Concomitant]
     Dosage: UNK
     Route: 065
     Dates: start: 20190509, end: 20190509
  51. SQUAREKIDS [Concomitant]
     Dosage: UNK
     Route: 065
     Dates: start: 20190704, end: 20190704
  52. Lopemin [Concomitant]
     Indication: Product used for unknown indication
     Dosage: UNK
     Route: 048
     Dates: start: 20190408, end: 20190510
  53. HERBALS [Concomitant]
     Active Substance: HERBALS
     Indication: Product used for unknown indication
     Dosage: UNK
     Route: 048
     Dates: start: 20190413, end: 20190829
  54. AMBROXOL HYDROCHLORIDE [Concomitant]
     Active Substance: AMBROXOL HYDROCHLORIDE
     Indication: Product used for unknown indication
     Dosage: UNK
     Route: 065
  55. TRANILAST [Concomitant]
     Active Substance: TRANILAST
     Indication: Product used for unknown indication
     Dosage: UNK
     Route: 048
     Dates: start: 20190513, end: 20190718
  56. TRANILAST [Concomitant]
     Active Substance: TRANILAST
     Dosage: UNK
     Route: 048
     Dates: start: 20190822
  57. AMPICILLIN SODIUM\SULBACTAM SODIUM [Concomitant]
     Active Substance: AMPICILLIN SODIUM\SULBACTAM SODIUM
     Indication: Central venous catheterisation
     Dosage: UNK
     Route: 065
     Dates: start: 20190626, end: 20190627
  58. MIDAZOLAM [Concomitant]
     Active Substance: MIDAZOLAM
     Indication: Central venous catheterisation
     Dosage: UNK
     Route: 065
     Dates: start: 20190626, end: 20190627
  59. FENTANYL [Concomitant]
     Active Substance: FENTANYL
     Indication: Central venous catheterisation
     Dosage: UNK
     Route: 065
     Dates: start: 20190626, end: 20190627
  60. VECURONIUM [Concomitant]
     Active Substance: VECURONIUM BROMIDE
     Indication: Central venous catheterisation
     Dosage: UNK
     Route: 065
     Dates: start: 20190626, end: 20190627
  61. Bcg vaccine freeze dried [Concomitant]
     Indication: Antibiotic prophylaxis
     Dosage: UNK
     Route: 065
     Dates: start: 20190718, end: 20190718

REACTIONS (13)
  - Inguinal hernia [Recovered/Resolved]
  - Lymphadenopathy [Recovered/Resolved]
  - Injection site swelling [Recovered/Resolved]
  - Injection site erythema [Unknown]
  - Device breakage [Recovered/Resolved]
  - Injection site haemorrhage [Unknown]
  - Diarrhoea [Recovering/Resolving]
  - Lymphadenopathy [Recovering/Resolving]
  - Injection site pruritus [Not Recovered/Not Resolved]
  - Infection [Recovered/Resolved]
  - Catheter site swelling [Recovered/Resolved]
  - Injection site induration [Recovered/Resolved]
  - Injection site pruritus [Recovering/Resolving]

NARRATIVE: CASE EVENT DATE: 20190306
